FAERS Safety Report 18349665 (Version 1)
Quarter: 2020Q4

REPORT INFORMATION
  Report Type: Spontaneous
  Country: GB (occurrence: GB)
  Receive Date: 20201006
  Receipt Date: 20201006
  Transmission Date: 20210114
  Serious: Yes (Other)
  Sender: FDA-Public Use
  Company Number: GB-SHILPA MEDICARE LIMITED-SML-GB-2020-00393

PATIENT
  Age: 21 Year
  Sex: Male

DRUGS (4)
  1. FILGRASTIM [Concomitant]
     Active Substance: FILGRASTIM
     Indication: PROPHYLAXIS
     Dosage: 21 DAYS CYCLE
     Route: 065
  2. GEMCITABINE. [Suspect]
     Active Substance: GEMCITABINE
     Indication: TESTICULAR GERM CELL TUMOUR MIXED
     Dosage: ON DAY 5 + DAY 15 FOR 6 CYCLES.
     Route: 042
  3. GUADECITABINE [Suspect]
     Active Substance: GUADECITABINE
     Indication: TESTICULAR GERM CELL TUMOUR MIXED
     Dosage: 1 TO 5 DAYS
     Route: 058
  4. CISPLATIN. [Suspect]
     Active Substance: CISPLATIN
     Indication: TESTICULAR GERM CELL TUMOUR MIXED
     Dosage: ON DAY 8
     Route: 042

REACTIONS (4)
  - Neutropenia [Unknown]
  - Metastases to central nervous system [Unknown]
  - Febrile neutropenia [Unknown]
  - Thrombocytopenia [Unknown]
